FAERS Safety Report 5590279-5 (Version None)
Quarter: 2008Q1

REPORT INFORMATION
  Report Type: 
  Country: None (occurrence: None)
  Receive Date: 20080114
  Receipt Date: 20080107
  Transmission Date: 20080703
  Serious: Yes (Disabling, Other)
  Sender: FDA-Public Use
  Company Number: PHFR2008GB00494

PATIENT
  Age: 36 Year
  Sex: Female

DRUGS (2)
  1. CARBAMAZEPINE [Suspect]
     Dosage: 100 MG, BID
     Route: 048
     Dates: end: 20070901
  2. LITIUMKARBONAT [Concomitant]
     Dosage: 800 MG, QD
     Route: 048

REACTIONS (3)
  - ALVEOLITIS ALLERGIC [None]
  - HYPOVENTILATION [None]
  - RESPIRATORY GAS EXCHANGE DISORDER [None]
